FAERS Safety Report 10776875 (Version 1)
Quarter: 2015Q1

REPORT INFORMATION
  Report Type: Spontaneous
  Country: ZA (occurrence: None)
  Receive Date: 20150206
  Receipt Date: 20150206
  Transmission Date: 20150721
  Serious: Yes (Life-Threatening, Hospitalization)
  Sender: FDA-Public Use
  Company Number: None

PATIENT
  Age: 15 Year
  Sex: Male
  Weight: 50 kg

DRUGS (4)
  1. ABILIFY [Suspect]
     Active Substance: ARIPIPRAZOLE
     Indication: PRODUCT USED FOR UNKNOWN INDICATION
     Dosage: 1 PILL ONCE DAILY TAKEN BY MOUTH
     Route: 048
     Dates: start: 20140908, end: 20141014
  2. ABILIFY [Suspect]
     Active Substance: ARIPIPRAZOLE
     Indication: ABNORMAL BEHAVIOUR
     Dosage: 1 PILL ONCE DAILY TAKEN BY MOUTH
     Route: 048
     Dates: start: 20140908, end: 20141014
  3. NORMACOL [Concomitant]
     Active Substance: KARAYA GUM
  4. NEXMEZOL [Concomitant]

REACTIONS (12)
  - Eye movement disorder [None]
  - Abdominal pain upper [None]
  - Protrusion tongue [None]
  - Hyperhidrosis [None]
  - Dyspepsia [None]
  - Drooling [None]
  - Decreased appetite [None]
  - Feeling abnormal [None]
  - Head titubation [None]
  - Asterixis [None]
  - Psychotic disorder [None]
  - Regressive behaviour [None]
